FAERS Safety Report 5495107-4 (Version None)
Quarter: 2007Q4

REPORT INFORMATION
  Report Type: 
  Country: None (occurrence: None)
  Receive Date: 20071024
  Receipt Date: 20071022
  Transmission Date: 20080405
  Serious: No
  Sender: FDA-Public Use
  Company Number: US-BOEHRINGER INGELHEIM PHARMACEUTICALS, INC.-2007-BP-23152BP

PATIENT
  Age: 74 Year
  Sex: Female

DRUGS (4)
  1. ZANTAC 75 [Suspect]
     Indication: DYSPEPSIA
     Route: 048
     Dates: start: 20071008, end: 20071008
  2. ZANTAC 75 [Suspect]
  3. ASPIRIN [Concomitant]
     Indication: CARDIAC DISORDER
  4. MYLANTA [Concomitant]
     Indication: DYSPEPSIA

REACTIONS (2)
  - DYSPHAGIA [None]
  - THROAT TIGHTNESS [None]
